FAERS Safety Report 8030355-0 (Version None)
Quarter: 2012Q1

REPORT INFORMATION
  Report Type: 
  Country: None (occurrence: None)
  Receive Date: 20120109
  Receipt Date: 20120109
  Transmission Date: 20120608
  Serious: Yes (Hospitalization)
  Sender: FDA-Public Use
  Company Number: None

PATIENT
  Age: 88 Year
  Sex: Female
  Weight: 86 kg

DRUGS (6)
  1. LISINOPRIL [Concomitant]
  2. DABIGATRAN [Suspect]
  3. KLOR-CON [Concomitant]
  4. AMLODIPINE [Concomitant]
  5. LOPRESSOR [Concomitant]
  6. LASIX [Concomitant]

REACTIONS (2)
  - CREATININE RENAL CLEARANCE DECREASED [None]
  - HAEMORRHAGE [None]
